FAERS Safety Report 6482602-4 (Version None)
Quarter: 2009Q4

REPORT INFORMATION
  Report Type: 
  Country: None (occurrence: None)
  Receive Date: 20091209
  Receipt Date: 20091130
  Transmission Date: 20100525
  Serious: Yes (Hospitalization, Other)
  Sender: FDA-Public Use
  Company Number: AU-RANBAXY-2009US-27308

PATIENT

DRUGS (1)
  1. TEMPRA [Suspect]
     Dosage: 30 MG, 4-6 HOURLY, 6-8 DAYS, APPROX 60MG/KG/DAY
     Route: 048

REACTIONS (2)
  - DRUG TOXICITY [None]
  - LIVER INJURY [None]
